FAERS Safety Report 8968225 (Version 2)
Quarter: 2012Q4

REPORT INFORMATION
  Report Type: 
  Country: RO (occurrence: RO)
  Receive Date: 20121218
  Receipt Date: 20121228
  Transmission Date: 20130627
  Serious: Yes (Hospitalization, Other)
  Sender: FDA-Public Use
  Company Number: RO-RANBAXY-2012RR-63154

PATIENT
  Age: 21 Year
  Sex: Male

DRUGS (16)
  1. MYCOMAX [Suspect]
     Indication: DISSEMINATED CRYPTOCOCCOSIS
     Dosage: 400 mg, bid
     Route: 042
     Dates: start: 20100414, end: 20100505
  2. MYCOMAX [Suspect]
     Dosage: 400 (2 x 200) mg/day
     Route: 042
  3. FLUCONAZOLE [Suspect]
     Indication: DISSEMINATED CRYPTOCOCCOSIS
     Dosage: 150 mg, tid
     Route: 048
     Dates: start: 20100506, end: 20100716
  4. FLUCONAZOLE [Suspect]
     Dosage: 200 mg (150+50) mg /day
     Route: 048
  5. COMBIVIR [Suspect]
     Indication: HIV INFECTION
     Dosage: 2 x 1 tablets/day
     Route: 048
     Dates: start: 20100518, end: 20100524
  6. KALETRA [Suspect]
     Indication: HIV INFECTION
     Dosage: 2 x 2 tablets/day
     Route: 048
  7. STOCRIN [Suspect]
     Indication: HIV INFECTION
     Dosage: 0-0-600 mg/day
     Route: 048
  8. ABACAVIR [Concomitant]
     Indication: HIV INFECTION
     Dosage: UNK
     Route: 065
  9. NEVIRAPINE [Concomitant]
     Indication: HIV INFECTION
     Dosage: UNK
     Route: 065
  10. FOSAMPRENAVIR [Concomitant]
     Indication: HIV INFECTION
     Dosage: UNK
     Route: 065
  11. LAMIVUDINE [Concomitant]
     Indication: HIV INFECTION
     Dosage: UNK
     Route: 065
  12. BISEPTOL [Concomitant]
     Indication: PROPHYLAXIS
     Dosage: 2 x 1 tablet daily, administered continuously
     Route: 065
     Dates: start: 20100413
  13. MANITOL [Concomitant]
     Indication: PRODUCT USED FOR UNKNOWN INDICATION
     Dosage: 100 ml, qid
     Route: 042
     Dates: start: 20100409, end: 20100616
  14. ACETAZOLAMIDE [Concomitant]
     Indication: PRODUCT USED FOR UNKNOWN INDICATION
     Dosage: 2 x 1 tablets/day
     Route: 048
     Dates: start: 20100618, end: 20100703
  15. ACETAZOLAMIDE [Concomitant]
     Dosage: 2 x 1 tablets/day
     Route: 048
     Dates: end: 201009
  16. GLICEROL [Concomitant]
     Indication: PRODUCT USED FOR UNKNOWN INDICATION
     Dosage: 3 x 20 ml/day
     Route: 048
     Dates: start: 20100618, end: 20100703

REACTIONS (5)
  - Gastrointestinal disorder [Recovered/Resolved]
  - Rash [Recovered/Resolved]
  - Pruritus [Recovered/Resolved]
  - Anaemia [Recovered/Resolved]
  - Drug interaction [Recovered/Resolved]
